FAERS Safety Report 4568110-6 (Version None)
Quarter: 2005Q1

REPORT INFORMATION
  Report Type: 
  Country: None (occurrence: None)
  Receive Date: 20050131
  Receipt Date: 20050120
  Transmission Date: 20050727
  Serious: Yes (Hospitalization)
  Sender: FDA-Public Use
  Company Number: DE-2005-000861

PATIENT
  Age: 36 Year
  Sex: Female

DRUGS (1)
  1. MIRENA [Suspect]
     Dosage: 20 UG/DAY, CONT, INTRA-UTERINE
     Route: 015
     Dates: start: 20041108, end: 20050119

REACTIONS (4)
  - ARRHYTHMIA [None]
  - CARDIOVASCULAR DISORDER [None]
  - ELECTROCARDIOGRAM CHANGE [None]
  - LIVER FUNCTION TEST ABNORMAL [None]
